FAERS Safety Report 9706389 (Version 1)
Quarter: 2013Q4

REPORT INFORMATION
  Report Type: Spontaneous
  Country: US (occurrence: US)
  Receive Date: 20131125
  Receipt Date: 20131125
  Transmission Date: 20140711
  Serious: No
  Sender: FDA-Public Use
  Company Number: US-BIOGENIDEC-2013BI110082

PATIENT
  Age: 56 Year
  Sex: Female

DRUGS (2)
  1. AVONEX [Suspect]
     Indication: MULTIPLE SCLEROSIS
     Route: 030
     Dates: start: 20130913, end: 201310
  2. AVONEX [Suspect]
     Indication: MULTIPLE SCLEROSIS
     Route: 030
     Dates: start: 201310

REACTIONS (8)
  - Frustration [Unknown]
  - Fear [Recovered/Resolved]
  - Underdose [Recovered/Resolved]
  - Drug dose omission [Recovered/Resolved]
  - Panic attack [Recovered/Resolved]
  - Tremor [Unknown]
  - Anxiety [Unknown]
  - Palpitations [Unknown]
